FAERS Safety Report 8621289-9 (Version None)
Quarter: 2012Q3

REPORT INFORMATION
  Report Type: 
  Country: None (occurrence: None)
  Receive Date: 20120824
  Receipt Date: 20120801
  Transmission Date: 20120928
  Serious: No
  Sender: FDA-Public Use
  Company Number: US-009507513-1208USA001158

PATIENT

DRUGS (11)
  1. VICTRELIS [Suspect]
     Indication: HEPATITIS C
     Dosage: 800 MG, TID
     Route: 048
     Dates: start: 20120611
  2. PRILOSEC [Concomitant]
  3. PROGRAF [Concomitant]
  4. TOPROL-XL [Concomitant]
  5. PEGASYS [Concomitant]
     Dosage: 180 MICROGRAM, QW
  6. AMLODIPINE [Concomitant]
  7. RIBASPHERE [Concomitant]
     Dosage: 400 MG, HS
  8. ZOLOFT [Concomitant]
  9. CYCLOSPORINE [Concomitant]
     Dosage: 175 MG, QD
  10. RIBASPHERE [Concomitant]
     Dosage: 600 MG, QAM
  11. NEUPOGEN [Concomitant]
     Dosage: UNK
     Dates: start: 20120101

REACTIONS (1)
  - WHITE BLOOD CELL COUNT ABNORMAL [None]
